FAERS Safety Report 9869451 (Version 3)
Quarter: 2015Q1

REPORT INFORMATION
  Report Type: Spontaneous
  Country: US (occurrence: US)
  Receive Date: 20140205
  Receipt Date: 20150312
  Transmission Date: 20150721
  Serious: Yes (Hospitalization)
  Sender: FDA-Public Use
  Company Number: US-PFIZER INC-2014030429

PATIENT
  Age: 67 Year
  Sex: Male
  Weight: 214 kg

DRUGS (10)
  1. ALLOPURINOL. [Concomitant]
     Active Substance: ALLOPURINOL
     Dosage: UNK
  2. UROXATRAL [Concomitant]
     Active Substance: ALFUZOSIN HYDROCHLORIDE
     Dosage: UNK
  3. SUTENT [Suspect]
     Active Substance: SUNITINIB MALATE
     Dosage: 4 WEEKS ON AND 2 WEEKS OFF
  4. SUTENT [Suspect]
     Active Substance: SUNITINIB MALATE
     Dosage: 37.5 MG, 2 WEEKS ON AND 1 WEEK OFF
     Dates: end: 20150112
  5. OXYCODONE [Concomitant]
     Active Substance: OXYCODONE
     Dosage: UNK, PRN
  6. SUTENT [Suspect]
     Active Substance: SUNITINIB MALATE
     Dosage: 50 MG, 2 WEEKS ON AND 1 WEEK OFF
  7. XGEVA [Concomitant]
     Active Substance: DENOSUMAB
     Dosage: UNK
  8. SYNTHROID [Concomitant]
     Active Substance: LEVOTHYROXINE SODIUM
     Dosage: UNK
     Dates: start: 20080410
  9. SUTENT [Suspect]
     Active Substance: SUNITINIB MALATE
     Dosage: 50 MG, 4 WEEKS ON AND 2 WEEKS OFF
     Dates: start: 20140101
  10. COLCHICINE. [Concomitant]
     Active Substance: COLCHICINE
     Dosage: UNK, PRN

REACTIONS (15)
  - Rash [Unknown]
  - Weight increased [Unknown]
  - Pain [Unknown]
  - Cough [Unknown]
  - Gout [Unknown]
  - Vomiting [Unknown]
  - Diarrhoea [Unknown]
  - Fatigue [Unknown]
  - Gastrooesophageal reflux disease [Unknown]
  - Hypoaesthesia [Unknown]
  - Eye movement disorder [Unknown]
  - Pneumonitis [Unknown]
  - Eye swelling [Unknown]
  - Dyspnoea [Unknown]
  - Presyncope [Unknown]

NARRATIVE: CASE EVENT DATE: 2014
